FAERS Safety Report 4313452-2 (Version None)
Quarter: 2004Q1

REPORT INFORMATION
  Report Type: 
  Country: None (occurrence: None)
  Receive Date: 20040304
  Receipt Date: 20040220
  Transmission Date: 20041129
  Serious: Yes (Hospitalization)
  Sender: FDA-Public Use
  Company Number: HQWYE251623FEB04

PATIENT
  Age: 53 Year
  Sex: Male
  Weight: 102.6 kg

DRUGS (7)
  1. EFFEXOR XR [Suspect]
     Indication: DEPRESSION
     Dosage: SEE IMAGE
     Route: 048
     Dates: start: 20031101, end: 20030101
  2. EFFEXOR XR [Suspect]
     Indication: DEPRESSION
     Dosage: SEE IMAGE
     Route: 048
     Dates: start: 20030101, end: 20040217
  3. EFFEXOR XR [Suspect]
     Indication: DEPRESSION
     Dosage: SEE IMAGE
     Route: 048
     Dates: start: 20040218
  4. LISINOPRIL [Concomitant]
  5. ZANTAC [Concomitant]
  6. DARVOCET-N (DEXTROPROPOXYPHENE/PARACETAMOL) [Concomitant]
  7. TYLENOL [Concomitant]

REACTIONS (6)
  - CONSTIPATION [None]
  - ERUCTATION [None]
  - IMPAIRED GASTRIC EMPTYING [None]
  - NAUSEA [None]
  - NEPHROLITHIASIS [None]
  - RETCHING [None]
